FAERS Safety Report 17388504 (Version 1)
Quarter: 2020Q1

REPORT INFORMATION
  Report Type: Spontaneous
  Country: CA (occurrence: CA)
  Receive Date: 20200207
  Receipt Date: 20200207
  Transmission Date: 20200409
  Serious: Yes (Other)
  Sender: FDA-Public Use
  Company Number: CA-HORIZON-RAV-0424-2019

PATIENT
  Age: 15 Year
  Sex: Female

DRUGS (8)
  1. AMINO ACIDS [Concomitant]
     Active Substance: AMINO ACIDS, SOURCE UNSPECIFIED
  2. VITAMIN D [Concomitant]
     Active Substance: VITAMIN D NOS
  3. CALCIUM [Concomitant]
     Active Substance: CALCIUM
  4. RAVICTI [Suspect]
     Active Substance: GLYCEROL PHENYLBUTYRATE
     Indication: ORNITHINE TRANSCARBAMOYLASE DEFICIENCY
     Dosage: 5.0ML TID; 5.3ML TID SINCE 20-DEC-2019
     Dates: start: 20170210
  5. MULTIVITAMINS [Concomitant]
     Active Substance: VITAMINS
  6. SODIUM BENZOATE [Concomitant]
     Active Substance: SODIUM BENZOATE
  7. CITRULLINE [Concomitant]
     Active Substance: CITRULLINE
  8. FREYA BIRTH CONTROL [Concomitant]

REACTIONS (4)
  - Weight increased [Unknown]
  - Ammonia increased [Unknown]
  - Nausea [Unknown]
  - Hypophagia [Unknown]

NARRATIVE: CASE EVENT DATE: 20191220
